FAERS Safety Report 12222238 (Version 1)
Quarter: 2016Q1

REPORT INFORMATION
  Report Type: Spontaneous
  Country: US (occurrence: US)
  Receive Date: 20160330
  Receipt Date: 20160330
  Transmission Date: 20160526
  Serious: No
  Sender: FDA-Public Use
  Company Number: US-TARO-2015TAR01004

PATIENT
  Sex: Female

DRUGS (2)
  1. NYSTATIN ORAL SUSPENSION [Suspect]
     Active Substance: NYSTATIN
     Indication: COATING IN MOUTH
     Dosage: UNK
     Route: 048
     Dates: start: 2015
  2. NYSTATIN ORAL SUSPENSION [Suspect]
     Active Substance: NYSTATIN
     Indication: DYSGEUSIA

REACTIONS (1)
  - Drug ineffective [Not Recovered/Not Resolved]

NARRATIVE: CASE EVENT DATE: 2015
